FAERS Safety Report 4659082-4 (Version None)
Quarter: 2005Q2

REPORT INFORMATION
  Report Type: 
  Country: None (occurrence: None)
  Receive Date: 20050509
  Receipt Date: 20050426
  Transmission Date: 20051028
  Serious: Yes (Other)
  Sender: FDA-Public Use
  Company Number: 2005053945

PATIENT
  Age: 61 Year
  Sex: Female

DRUGS (3)
  1. CABERGOLINE [Suspect]
     Indication: PARKINSON'S DISEASE
     Dosage: 6 MG (DAILY),ORAL
     Route: 048
     Dates: start: 20020320, end: 20050304
  2. SINEMET [Concomitant]
  3. PAROXETINE HCL [Concomitant]

REACTIONS (1)
  - MITRAL VALVE INCOMPETENCE [None]
